FAERS Safety Report 17741288 (Version 3)
Quarter: 2020Q2

REPORT INFORMATION
  Report Type: Report from Study
  Country: IN (occurrence: IN)
  Receive Date: 20200504
  Receipt Date: 20200603
  Transmission Date: 20200714
  Serious: Yes (Other)
  Sender: FDA-Public Use
  Company Number: NVSC2020IN053931

PATIENT
  Age: 55 Year
  Sex: Male
  Weight: 66 kg

DRUGS (1)
  1. GALVUS MET [Suspect]
     Active Substance: METFORMIN HYDROCHLORIDE\VILDAGLIPTIN
     Indication: DIABETES MELLITUS
     Dosage: (50/500), QD (0-0-1)
     Route: 048
     Dates: start: 201911

REACTIONS (7)
  - Abdominal discomfort [Unknown]
  - Hyperglycaemia [Unknown]
  - Pruritus [Unknown]
  - Gastric disorder [Unknown]
  - Oropharyngeal discomfort [Unknown]
  - Tooth infection [Unknown]
  - Throat irritation [Unknown]

NARRATIVE: CASE EVENT DATE: 20200220
